FAERS Safety Report 5709163-9 (Version None)
Quarter: 2008Q2

REPORT INFORMATION
  Report Type: 
  Country: None (occurrence: None)
  Receive Date: 20080418
  Receipt Date: 20080415
  Transmission Date: 20081010
  Serious: Yes (Hospitalization, Other)
  Sender: FDA-Public Use
  Company Number: AU-AVENTIS-200811708GDDC

PATIENT
  Age: 57 Year
  Sex: Female

DRUGS (3)
  1. LANTUS [Suspect]
     Dosage: DOSE: UNK
     Route: 058
     Dates: start: 20070907, end: 20071201
  2. DIABEX [Concomitant]
  3. MAGNESIUM SUPPLEMENTS [Concomitant]

REACTIONS (4)
  - ARTHRITIS VIRAL [None]
  - CARDIAC FAILURE [None]
  - OEDEMA [None]
  - PULMONARY OEDEMA [None]
